FAERS Safety Report 9419308 (Version 1)
Quarter: 2013Q3

REPORT INFORMATION
  Report Type: Spontaneous
  Country: US (occurrence: US)
  Receive Date: 20130725
  Receipt Date: 20130725
  Transmission Date: 20140515
  Serious: No
  Sender: FDA-Public Use
  Company Number: US-GLAXOSMITHKLINE-A1007146A

PATIENT
  Age: 29 Year
  Sex: Female
  Weight: 79.5 kg

DRUGS (3)
  1. LAMICTAL XR [Suspect]
     Indication: DEPRESSION
     Dosage: 200MG UNKNOWN
     Route: 065
     Dates: start: 20121221
  2. XANAX [Suspect]
     Indication: ANXIETY
     Dosage: .5MG PER DAY
     Route: 048
     Dates: start: 20120316
  3. CELEXA [Suspect]
     Indication: DEPRESSION
     Dosage: 5MG PER DAY
     Route: 048
     Dates: start: 20120423, end: 20130215

REACTIONS (1)
  - Exposure during pregnancy [Unknown]
